FAERS Safety Report 16499090 (Version 1)
Quarter: 2019Q3

REPORT INFORMATION
  Report Type: Report from Study
  Country: None (occurrence: AR)
  Receive Date: 20190701
  Receipt Date: 20190701
  Transmission Date: 20191004
  Serious: Yes (Other)
  Sender: FDA-Public Use
  Company Number: AR-ABBVIE-19K-007-2837340-00

PATIENT
  Sex: Female

DRUGS (2)
  1. HUMIRA [Suspect]
     Active Substance: ADALIMUMAB
     Indication: PSORIATIC ARTHROPATHY
     Route: 058
     Dates: start: 20171127
  2. MERIDIAN (ESCITALOPRAM OXALATE) [Suspect]
     Active Substance: ESCITALOPRAM OXALATE
     Indication: EPILEPSY
     Route: 065
     Dates: start: 2019

REACTIONS (4)
  - Somnolence [Unknown]
  - Fatigue [Unknown]
  - Rash generalised [Unknown]
  - Epilepsy [Unknown]

NARRATIVE: CASE EVENT DATE: 2019
